FAERS Safety Report 8211420-1 (Version None)
Quarter: 2012Q1

REPORT INFORMATION
  Report Type: 
  Country: None (occurrence: None)
  Receive Date: 20120315
  Receipt Date: 20120309
  Transmission Date: 20120608
  Serious: Yes (Hospitalization)
  Sender: FDA-Public Use
  Company Number: FR-PFIZER INC-2012062726

PATIENT
  Age: 30 Year
  Sex: Female

DRUGS (7)
  1. CEFPODOXIME PROXETIL [Suspect]
     Indication: EAR INFECTION
     Dosage: UNK
     Route: 048
     Dates: start: 20120125, end: 20120130
  2. LIORESAL [Concomitant]
     Dosage: 1 DF, 2X/DAY
  3. VITAMIN D [Concomitant]
     Dosage: 1 DF, MONTHLY
  4. EFFEXOR XR [Suspect]
     Dosage: 37.5 MG, UNK
     Route: 048
     Dates: start: 20120107, end: 20120210
  5. SOLU-MEDROL [Suspect]
     Indication: MULTIPLE SCLEROSIS
     Dosage: UNK
     Route: 042
     Dates: start: 20120110, end: 20120110
  6. TYSABRI [Concomitant]
     Indication: MULTIPLE SCLEROSIS
     Dosage: UNK
     Dates: start: 20111201
  7. NORDETTE-21 [Concomitant]
     Dosage: 1 DF, 1X/DAY

REACTIONS (1)
  - PANCREATITIS ACUTE [None]
